FAERS Safety Report 6519970-0 (Version None)
Quarter: 2009Q4

REPORT INFORMATION
  Report Type: 
  Country: None (occurrence: None)
  Receive Date: 20091229
  Receipt Date: 20091221
  Transmission Date: 20100525
  Serious: Yes (Other)
  Sender: FDA-Public Use
  Company Number: BR-ASTRAZENECA-2009SE33103

PATIENT
  Age: 73 Year
  Sex: Female

DRUGS (3)
  1. SEROQUEL [Suspect]
     Indication: DEMENTIA ALZHEIMER'S TYPE
     Route: 048
     Dates: start: 20050101
  2. SERTRALINE HCL [Concomitant]
     Indication: DEMENTIA ALZHEIMER'S TYPE
     Route: 048
     Dates: start: 20050101
  3. ALOIS [Concomitant]
     Indication: DEMENTIA ALZHEIMER'S TYPE
     Route: 048
     Dates: start: 20050101

REACTIONS (6)
  - DRUG DOSE OMISSION [None]
  - DRY MOUTH [None]
  - MYDRIASIS [None]
  - OFF LABEL USE [None]
  - SOMNOLENCE [None]
  - SYNCOPE [None]
